FAERS Safety Report 13671448 (Version 1)
Quarter: 2017Q2

REPORT INFORMATION
  Report Type: Spontaneous
  Country: US (occurrence: US)
  Receive Date: 20170620
  Receipt Date: 20170620
  Transmission Date: 20170830
  Serious: No
  Sender: FDA-Public Use
  Company Number: None

PATIENT

DRUGS (1)
  1. SUBOXONE [Suspect]
     Active Substance: BUPRENORPHINE HYDROCHLORIDE\NALOXONE HYDROCHLORIDE
     Indication: DRUG USE DISORDER
     Dosage: DOSE - 3 FILMS - 2 - 8MG  1 - 2MG DAILY  SL
     Route: 060
     Dates: start: 20170224, end: 20170620

REACTIONS (1)
  - Tongue ulceration [None]

NARRATIVE: CASE EVENT DATE: 20170620
